FAERS Safety Report 5465861-6 (Version None)
Quarter: 2007Q3

REPORT INFORMATION
  Report Type: 
  Country: None (occurrence: None)
  Receive Date: 20070924
  Receipt Date: 20070918
  Transmission Date: 20080115
  Serious: Yes (Other)
  Sender: FDA-Public Use
  Company Number: PHEH2007US12503

PATIENT
  Age: 79 Year
  Sex: Female
  Weight: 60.317 kg

DRUGS (9)
  1. TIMOLOL MALEATE [Concomitant]
  2. MICARDIS [Concomitant]
  3. FOLIC ACID [Concomitant]
  4. ZOCOR [Concomitant]
  5. MECLIZINE [Concomitant]
  6. METOPROLOL [Concomitant]
  7. XALATAN [Concomitant]
  8. POTASSIUM CHLORIDE [Concomitant]
  9. FEMARA [Suspect]
     Indication: BREAST CANCER
     Dosage: 2.5 MG, QD
     Route: 048
     Dates: start: 20060901

REACTIONS (9)
  - AURA [None]
  - BALANCE DISORDER [None]
  - DIPLOPIA [None]
  - DIZZINESS [None]
  - HYPERHIDROSIS [None]
  - HYPERTENSION [None]
  - HYPOTENSION [None]
  - NAUSEA [None]
  - SYNCOPE [None]
